FAERS Safety Report 21872059 (Version 1)
Quarter: 2023Q1

REPORT INFORMATION
  Report Type: Spontaneous
  Country: US (occurrence: None)
  Receive Date: 20230114
  Receipt Date: 20230114
  Transmission Date: 20230418
  Serious: Yes (Disabling, Other)
  Sender: FDA-Public Use
  Company Number: None

PATIENT
  Age: 57 Year
  Sex: Female
  Weight: 99 kg

DRUGS (7)
  1. LEVOFLOXACIN [Suspect]
     Active Substance: LEVOFLOXACIN
     Indication: Pneumonia
     Dosage: OTHER QUANTITY : 7 TABLET(S);?FREQUENCY : DAILY;?
     Route: 048
     Dates: start: 20221219, end: 20221224
  2. LOSARTAN [Concomitant]
     Active Substance: LOSARTAN
  3. Celexa 40mg daily [Concomitant]
  4. Protonix 40mg daily [Concomitant]
  5. Trelegy 1 puff daily [Concomitant]
  6. qvar 2 puffs bid [Concomitant]
  7. VITAMINS [Concomitant]
     Active Substance: VITAMINS

REACTIONS (10)
  - Dizziness [None]
  - Nausea [None]
  - Anxiety [None]
  - Fatigue [None]
  - Abdominal pain [None]
  - Arthralgia [None]
  - Pain in extremity [None]
  - Pain in extremity [None]
  - Ileus [None]
  - Meniscus injury [None]

NARRATIVE: CASE EVENT DATE: 20221222
